FAERS Safety Report 5395505-3 (Version None)
Quarter: 2007Q3

REPORT INFORMATION
  Report Type: 
  Country: None (occurrence: None)
  Receive Date: 20070724
  Receipt Date: 20070720
  Transmission Date: 20080115
  Serious: Yes (Death)
  Sender: FDA-Public Use
  Company Number: JP-SANOFI-SYNTHELABO-F01200700913

PATIENT
  Age: 55 Year
  Sex: Male

DRUGS (7)
  1. BEVACIZUMAB [Suspect]
     Route: 042
     Dates: start: 20070706, end: 20070706
  2. FLUOROURACIL [Suspect]
     Route: 042
     Dates: start: 20070706, end: 20070707
  3. CALCIUM FOLINATE [Suspect]
     Route: 042
     Dates: start: 20070706, end: 20070706
  4. MIYA BM [Concomitant]
     Dates: start: 20050615, end: 20070707
  5. LAC-B [Concomitant]
     Dates: start: 20050615, end: 20070707
  6. OXALIPLATIN [Suspect]
     Indication: RECTAL CANCER
     Route: 042
     Dates: start: 20070706, end: 20070706
  7. PHELLOBERIN A [Concomitant]
     Dates: start: 20050615, end: 20070707

REACTIONS (4)
  - SEPTIC SHOCK [None]
  - THROMBOPHLEBITIS [None]
  - VENA CAVA THROMBOSIS [None]
  - WHITE BLOOD CELL COUNT DECREASED [None]
